FAERS Safety Report 17685559 (Version 1)
Quarter: 2020Q2

REPORT INFORMATION
  Report Type: Spontaneous
  Country: US (occurrence: US)
  Receive Date: 20200420
  Receipt Date: 20200420
  Transmission Date: 20200714
  Serious: No
  Sender: FDA-Public Use
  Company Number: US-SA-2020SA102250

PATIENT
  Age: 18 Year
  Sex: Female

DRUGS (1)
  1. DUPIXENT [Suspect]
     Active Substance: DUPILUMAB
     Indication: NASAL POLYPS
     Dosage: 300 MG, QOW
     Route: 058
     Dates: start: 20200130

REACTIONS (3)
  - Injection site rash [Not Recovered/Not Resolved]
  - Erythema [Not Recovered/Not Resolved]
  - Dry eye [Recovering/Resolving]

NARRATIVE: CASE EVENT DATE: 2020
